FAERS Safety Report 13217579 (Version 1)
Quarter: 2017Q1

REPORT INFORMATION
  Report Type: Spontaneous
  Country: US (occurrence: US)
  Receive Date: 20170210
  Receipt Date: 20170210
  Transmission Date: 20170428
  Serious: No
  Sender: FDA-Public Use
  Company Number: US-ACORDA-ACO_125652_2016

PATIENT
  Sex: Female

DRUGS (1)
  1. AMPYRA [Suspect]
     Active Substance: DALFAMPRIDINE
     Indication: MULTIPLE SCLEROSIS
     Dosage: 10 MG, UNK
     Route: 048
     Dates: start: 20160624

REACTIONS (7)
  - Dizziness [Not Recovered/Not Resolved]
  - Vomiting [Unknown]
  - Headache [Not Recovered/Not Resolved]
  - Abasia [Not Recovered/Not Resolved]
  - Dysstasia [Unknown]
  - Nausea [Unknown]
  - Balance disorder [Not Recovered/Not Resolved]

NARRATIVE: CASE EVENT DATE: 20160624
